FAERS Safety Report 5087401-6 (Version None)
Quarter: 2006Q3

REPORT INFORMATION
  Report Type: 
  Country: None (occurrence: None)
  Receive Date: 20060824
  Receipt Date: 20060817
  Transmission Date: 20061208
  Serious: Yes (Other)
  Sender: FDA-Public Use
  Company Number: US-JNJFOC-20060804060

PATIENT
  Sex: Female

DRUGS (7)
  1. REMICADE [Suspect]
     Route: 042
  2. REMICADE [Suspect]
     Indication: RHEUMATOID ARTHRITIS
     Route: 042
  3. LOVOXIL [Concomitant]
     Route: 048
  4. PREDNISONE [Concomitant]
  5. FOSAMAX [Concomitant]
     Indication: OSTEOPOROSIS
  6. HYDROXYUREA [Concomitant]
     Route: 048
  7. M.V.I. [Concomitant]

REACTIONS (1)
  - LUNG NEOPLASM MALIGNANT [None]
